FAERS Safety Report 6013309-5 (Version None)
Quarter: 2008Q4

REPORT INFORMATION
  Report Type: 
  Country: None (occurrence: None)
  Receive Date: 20081218
  Receipt Date: 20081218
  Transmission Date: 20090506
  Serious: No
  Sender: FDA-Public Use
  Company Number: None

PATIENT
  Age: 65 Year
  Sex: Female

DRUGS (1)
  1. PULMICORT FLEXHALER [Suspect]
     Dosage: 180MCG; 2 INHALATIONS TWICE A DAY BY MOUTH
     Route: 048
     Dates: start: 20071210

REACTIONS (4)
  - ASTHMA [None]
  - CONDITION AGGRAVATED [None]
  - DEVICE MALFUNCTION [None]
  - PRODUCT QUALITY ISSUE [None]
